FAERS Safety Report 11881505 (Version 1)
Quarter: 2015Q4

REPORT INFORMATION
  Report Type: Spontaneous
  Country: IE (occurrence: CA)
  Receive Date: 20151231
  Receipt Date: 20151231
  Transmission Date: 20160305
  Serious: Yes (Other)
  Sender: FDA-Public Use
  Company Number: IE-CIPLA LTD.-2015CA09858

PATIENT

DRUGS (3)
  1. SUNITINIB [Suspect]
     Active Substance: SUNITINIB
     Indication: OESOPHAGEAL CARCINOMA
     Dosage: 37.5 MG, QD
     Route: 048
  2. IRINOTECAN [Suspect]
     Active Substance: IRINOTECAN
     Indication: OESOPHAGEAL CARCINOMA
     Dosage: 65 OR 50 MG/M2, WEEKLY ON WEEKS 1, 2, 4, 5, 7 AND 8
     Route: 065
  3. CISPLATIN. [Suspect]
     Active Substance: CISPLATIN
     Indication: OESOPHAGEAL CARCINOMA
     Dosage: 30 MG/M2, WEEKLY ON WEEKS 1, 2, 4, 5, 7 AND 8
     Route: 065

REACTIONS (3)
  - Rash [Unknown]
  - Dry skin [Unknown]
  - Ejection fraction decreased [Unknown]
